FAERS Safety Report 8077317-5 (Version None)
Quarter: 2012Q1

REPORT INFORMATION
  Report Type: 
  Country: None (occurrence: None)
  Receive Date: 20120127
  Receipt Date: 20120125
  Transmission Date: 20120608
  Serious: Yes (Death)
  Sender: FDA-Public Use
  Company Number: PHHY2012JP006862

PATIENT

DRUGS (1)
  1. LAMISIL [Suspect]
     Dosage: UNK
     Route: 048

REACTIONS (1)
  - INTERSTITIAL LUNG DISEASE [None]
